FAERS Safety Report 4927807-6 (Version None)
Quarter: 2006Q1

REPORT INFORMATION
  Report Type: 
  Country: None (occurrence: None)
  Receive Date: 20060127
  Receipt Date: 20051228
  Transmission Date: 20060701
  Serious: Yes (Other)
  Sender: FDA-Public Use
  Company Number: 2006001253

PATIENT
  Age: 56 Year
  Sex: Female
  Weight: 142.8831 kg

DRUGS (6)
  1. LYRICA [Suspect]
     Indication: NERVOUS SYSTEM DISORDER
     Dosage: 150 MG (75 MG, 1 IN 1 D)UNKNOWN
     Route: 065
     Dates: start: 20051214
  2. CLONIDINE [Concomitant]
  3. LASIX [Concomitant]
  4. COLACE (DOCUSATE SODIUM) [Concomitant]
  5. VITAMINS (VITAMINS) [Concomitant]
  6. OXYBUTYNIN CHLORIDE [Concomitant]

REACTIONS (5)
  - BALANCE DISORDER [None]
  - DIZZINESS [None]
  - SOMNOLENCE [None]
  - TINNITUS [None]
  - WEIGHT INCREASED [None]
